FAERS Safety Report 6402629-8 (Version None)
Quarter: 2009Q4

REPORT INFORMATION
  Report Type: 
  Country: None (occurrence: None)
  Receive Date: 20091009
  Receipt Date: 20090930
  Transmission Date: 20100525
  Serious: Yes (Disabling, Other)
  Sender: FDA-Public Use
  Company Number: ADR34722009

PATIENT
  Age: 78 Year
  Sex: Male

DRUGS (11)
  1. CIPROFLOXACIN [Suspect]
     Indication: CHRONIC OBSTRUCTIVE PULMONARY DISEASE
     Dosage: 1 G ORAL
     Route: 048
     Dates: start: 20060210, end: 20060210
  2. ASPIRIN [Concomitant]
  3. CALCIUM [Concomitant]
  4. CARBOCYSTEINE [Concomitant]
  5. CITALOPRAM HYDROBROMIDE [Concomitant]
  6. FUROSEMIDE [Concomitant]
  7. ISOSORBIDE [Concomitant]
  8. OMEPRAZOLE [Concomitant]
  9. SERETIDE (FLUTICASONE, SALMETEROL) [Concomitant]
  10. TIOTROPIUM [Concomitant]
  11. THEOPHYLLINE [Concomitant]

REACTIONS (2)
  - MUSCULAR WEAKNESS [None]
  - MYALGIA [None]
